FAERS Safety Report 24551021 (Version 2)
Quarter: 2024Q4

REPORT INFORMATION
  Report Type: Report from Study
  Country: CA (occurrence: CA)
  Receive Date: 20241025
  Receipt Date: 20241101
  Transmission Date: 20250115
  Serious: No
  Sender: EISAI
  Company Number: CA-Eisai-EC-2024-176824

PATIENT
  Age: 73 Year
  Sex: Male

DRUGS (1)
  1. LENVIMA [Suspect]
     Active Substance: LENVATINIB
     Indication: Hepatocellular carcinoma
     Dosage: STOPPED: OCT//2024
     Route: 048
     Dates: start: 20241008

REACTIONS (3)
  - Renal disorder [Recovering/Resolving]
  - Asthenia [Not Recovered/Not Resolved]
  - Decreased appetite [Not Recovered/Not Resolved]

NARRATIVE: CASE EVENT DATE: 20241001
